FAERS Safety Report 21143295 (Version 2)
Quarter: 2022Q3

REPORT INFORMATION
  Report Type: Spontaneous
  Country: US (occurrence: US)
  Receive Date: 20220728
  Receipt Date: 20220812
  Transmission Date: 20221027
  Serious: Yes (Other)
  Sender: FDA-Public Use
  Company Number: US-009507513-2207USA007824

PATIENT
  Sex: Male

DRUGS (2)
  1. KEYTRUDA [Suspect]
     Active Substance: PEMBROLIZUMAB
     Indication: Metastatic malignant melanoma
     Dosage: UNKNOWN BY REPORTER, Q3W
     Dates: start: 20210413
  2. YERVOY [Suspect]
     Active Substance: IPILIMUMAB
     Indication: Metastatic malignant melanoma
     Dosage: UNKNOWN BY REPORTER, Q3W
     Dates: start: 20210413, end: 20210615

REACTIONS (4)
  - Diabetes mellitus [Unknown]
  - Diarrhoea [Recovered/Resolved]
  - Dry mouth [Unknown]
  - Weight decreased [Unknown]
